FAERS Safety Report 25688917 (Version 1)
Quarter: 2025Q3

REPORT INFORMATION
  Report Type: Spontaneous
  Country: IN (occurrence: IN)
  Receive Date: 20250818
  Receipt Date: 20250818
  Transmission Date: 20251021
  Serious: Yes (Death, Life-Threatening, Hospitalization, Other)
  Sender: IPCA
  Company Number: IN-IPCA LABORATORIES LIMITED-IPC-2025-IN-002205

PATIENT

DRUGS (7)
  1. LAMOTRIGINE [Interacting]
     Active Substance: LAMOTRIGINE
     Indication: Epilepsy
     Route: 048
  2. VALPROATE SODIUM [Interacting]
     Active Substance: VALPROATE SODIUM
     Indication: Epilepsy
     Route: 065
  3. CLONAZEPAM [Concomitant]
     Active Substance: CLONAZEPAM
     Indication: Epilepsy
     Route: 065
  4. CHLOROQUINE [Concomitant]
     Active Substance: CHLOROQUINE
     Indication: Pyrexia
     Route: 065
  5. CEFIXME+POTASSIUM CLAVULANATE [Concomitant]
     Indication: Pyrexia
     Route: 065
  6. ACETAMINOPHEN [Concomitant]
     Active Substance: ACETAMINOPHEN
     Indication: Pyrexia
     Route: 065
  7. PRIMAQUINE [Concomitant]
     Active Substance: PRIMAQUINE
     Indication: Pyrexia
     Route: 048

REACTIONS (6)
  - Toxic epidermal necrolysis [Fatal]
  - Respiratory failure [Fatal]
  - Delirium [Fatal]
  - Patient uncooperative [Fatal]
  - Disorientation [Fatal]
  - Drug interaction [Unknown]
